FAERS Safety Report 8270833-2 (Version None)
Quarter: 2012Q2

REPORT INFORMATION
  Report Type: 
  Country: None (occurrence: None)
  Receive Date: 20120410
  Receipt Date: 20120403
  Transmission Date: 20120825
  Serious: Yes (Hospitalization, Disabling)
  Sender: FDA-Public Use
  Company Number: FR-PFIZER INC-2012084579

PATIENT
  Age: 37 Year
  Sex: Female

DRUGS (3)
  1. IBUPROFEN (ADVIL) [Suspect]
     Indication: MIGRAINE
     Dosage: UNK
     Dates: start: 20071101
  2. CYCLOSPORINE [Suspect]
     Indication: TOXIC EPIDERMAL NECROLYSIS
     Dosage: 3MG/KG PER DAY
     Dates: start: 20070101
  3. IBUPROFEN [Suspect]
     Indication: MIGRAINE
     Dosage: UNK
     Dates: start: 20071101

REACTIONS (6)
  - TOXIC EPIDERMAL NECROLYSIS [None]
  - SYSTEMIC LUPUS ERYTHEMATOSUS [None]
  - DRUG INEFFECTIVE [None]
  - PNEUMONIA STAPHYLOCOCCAL [None]
  - ANXIETY [None]
  - NEUROTOXICITY [None]
